FAERS Safety Report 21726740 (Version 1)
Quarter: 2022Q4

REPORT INFORMATION
  Report Type: Spontaneous
  Country: GB (occurrence: GB)
  Receive Date: 20221214
  Receipt Date: 20221214
  Transmission Date: 20230113
  Serious: Yes (Hospitalization, Other)
  Sender: FDA-Public Use
  Company Number: GB-VIIV HEALTHCARE LIMITED-GB2022EME182618

PATIENT
  Sex: Male

DRUGS (4)
  1. RILPIVIRINE [Interacting]
     Active Substance: RILPIVIRINE
     Indication: HIV infection
     Dosage: UNK
     Route: 065
     Dates: start: 20221115
  2. FLUCLOXACILLIN [Interacting]
     Active Substance: FLUCLOXACILLIN
     Indication: Product used for unknown indication
     Dosage: 1 G, QID
     Route: 042
     Dates: start: 20221126, end: 20221129
  3. FLUCLOXACILLIN [Interacting]
     Active Substance: FLUCLOXACILLIN
     Indication: Product used for unknown indication
     Dosage: UNK 14 DAY COURSE
     Route: 048
     Dates: start: 20221007
  4. CABOTEGRAVIR [Suspect]
     Active Substance: CABOTEGRAVIR
     Indication: HIV infection
     Route: 065
     Dates: start: 20221115

REACTIONS (3)
  - Postoperative wound infection [Unknown]
  - Tenoplasty [Unknown]
  - Drug interaction [Unknown]
